FAERS Safety Report 19808953 (Version 1)
Quarter: 2021Q3

REPORT INFORMATION
  Report Type: Spontaneous
  Country: US (occurrence: US)
  Receive Date: 20210909
  Receipt Date: 20210909
  Transmission Date: 20211014
  Serious: Yes (Other)
  Sender: FDA-Public Use
  Company Number: US-GLAXOSMITHKLINE-US2021GSK191261

PATIENT
  Sex: Female

DRUGS (6)
  1. ZANTAC [Suspect]
     Active Substance: RANITIDINE HYDROCHLORIDE
     Indication: HIATUS HERNIA
     Dosage: UNK,2X DAILY
     Route: 065
     Dates: start: 199001, end: 201101
  2. RANITIDINE CAPSULE [Suspect]
     Active Substance: RANITIDINE
     Indication: HIATUS HERNIA
     Dosage: UNK,2X DAILY
     Route: 065
     Dates: start: 199001, end: 201101
  3. ZANTAC [Suspect]
     Active Substance: RANITIDINE HYDROCHLORIDE
     Indication: HIATUS HERNIA
     Dosage: UNK,2X DAILY
     Route: 065
     Dates: start: 199001, end: 201101
  4. RANITIDINE. [Suspect]
     Active Substance: RANITIDINE
     Indication: HIATUS HERNIA
     Dosage: UNK,2X DAILY
     Route: 065
     Dates: start: 199001, end: 201101
  5. RANITIDINE. [Suspect]
     Active Substance: RANITIDINE
     Indication: HIATUS HERNIA
     Dosage: UNK,2X DAILY
     Route: 065
     Dates: start: 199001, end: 201101
  6. RANITIDINE. [Suspect]
     Active Substance: RANITIDINE
     Indication: HIATUS HERNIA
     Dosage: UNK,2X DAILY
     Route: 065
     Dates: start: 199001, end: 201101

REACTIONS (1)
  - Colorectal cancer [Unknown]
